FAERS Safety Report 8609462-7 (Version None)
Quarter: 2012Q3

REPORT INFORMATION
  Report Type: 
  Country: None (occurrence: None)
  Receive Date: 20120821
  Receipt Date: 20120816
  Transmission Date: 20120928
  Serious: Yes (Other)
  Sender: FDA-Public Use
  Company Number: BR-PFIZER INC-2012200907

PATIENT
  Age: 57 Year
  Sex: Female
  Weight: 62 kg

DRUGS (2)
  1. ATORVASTATIN CALCIUM [Suspect]
     Indication: CARDIAC DISORDER
  2. ATORVASTATIN CALCIUM [Suspect]
     Indication: HEART ALTERNATION
     Dosage: 10 MG, 1X/DAY
     Route: 048
     Dates: start: 20110803

REACTIONS (3)
  - DYSPNOEA [None]
  - OFF LABEL USE [None]
  - VENOUS OCCLUSION [None]
